FAERS Safety Report 4831987-0 (Version None)
Quarter: 2005Q4

REPORT INFORMATION
  Report Type: 
  Country: None (occurrence: None)
  Receive Date: 20051116
  Receipt Date: 20051108
  Transmission Date: 20060501
  Serious: Yes (Death)
  Sender: FDA-Public Use
  Company Number: 2005JP001950

PATIENT
  Age: 57 Year
  Sex: Female
  Weight: 47 kg

DRUGS (18)
  1. TACROLIMUS CAPSULES (TACROLIMUS) CAPSULE [Suspect]
     Indication: RHEUMATOID ARTHRITIS
     Dosage: 1.50 MG, UID/QD, ORAL
     Route: 048
     Dates: start: 20050614, end: 20050824
  2. CALBLOCK (AZELNIDIPINE) TABLET [Suspect]
     Indication: ANGINA PECTORIS
     Dosage: 8.00 MG, UID/QD, ORAL
     Route: 048
     Dates: end: 20050817
  3. SULFASALAZINE [Concomitant]
  4. MINOCYCLINE HCL [Concomitant]
  5. PREDNISOLONE [Concomitant]
  6. INFREE (INDOMETACIN) CAPSULE [Concomitant]
  7. LEVOTHYROXINE SODIUM [Concomitant]
  8. OMEPRAZOLE [Concomitant]
  9. CYTOTEC [Concomitant]
  10. CALCIUM CARBONATE (CALCIUM CARBONATE) [Concomitant]
  11. ALINAMIN F (FURSULTIAMINE) [Concomitant]
  12. LOCHOL TABLET [Concomitant]
  13. RENAGEL [Concomitant]
  14. FRANDOL TAPE (ISOSORBIDE DINITRATE) [Concomitant]
  15. LAXOBERON (SODIUM PICOSULFATE) [Concomitant]
  16. ARGAMATE JELLY (CALCIUM POLYSTYRENE SULFONATE) [Concomitant]
  17. HALCION [Concomitant]
  18. ALLELOCK (OLOPATADINE HYDROCHLORIDE) TABLET [Concomitant]

REACTIONS (19)
  - ACUTE RESPIRATORY DISTRESS SYNDROME [None]
  - BETA HAEMOLYTIC STREPTOCOCCAL INFECTION [None]
  - BLOOD CULTURE POSITIVE [None]
  - BLOOD PRESSURE DECREASED [None]
  - C-REACTIVE PROTEIN INCREASED [None]
  - COAGULOPATHY [None]
  - ENTEROCOCCAL INFECTION [None]
  - GASTROINTESTINAL AMYLOIDOSIS [None]
  - HAEMATOCRIT DECREASED [None]
  - HAEMODIALYSIS [None]
  - LIVER DISORDER [None]
  - LYMPHOCYTE COUNT DECREASED [None]
  - MULTIPLE-DRUG RESISTANCE [None]
  - PLEURAL EFFUSION [None]
  - PNEUMONIA [None]
  - SEPSIS [None]
  - STAPHYLOCOCCAL INFECTION [None]
  - STENOTROPHOMONAS INFECTION [None]
  - STREPTOCOCCAL INFECTION [None]
